FAERS Safety Report 12111243 (Version 1)
Quarter: 2016Q1

REPORT INFORMATION
  Report Type: Report from Study
  Country: US (occurrence: US)
  Receive Date: 20160224
  Receipt Date: 20160224
  Transmission Date: 20160526
  Serious: Yes (Hospitalization, Other)
  Sender: FDA-Public Use
  Company Number: US-INDIVIOR LIMITED-INDV-088174-2016

PATIENT
  Age: 30 Year
  Sex: Male

DRUGS (6)
  1. SUBOXONE [Suspect]
     Active Substance: BUPRENORPHINE HYDROCHLORIDE\NALOXONE HYDROCHLORIDE
     Dosage: UNK
     Route: 060
     Dates: start: 201602
  2. BUPRENORPHINE/NALOXONE GENERIC [Suspect]
     Active Substance: BUPRENORPHINE\NALOXONE
     Dosage: 8 MG TWICE A DAY, SOMETIMES TOOK MORE THAN PRESCRIBED
     Route: 060
     Dates: start: 2015, end: 201602
  3. BUPRENORPHINE/NALOXONE GENERIC [Suspect]
     Active Substance: BUPRENORPHINE\NALOXONE
     Indication: DRUG DEPENDENCE
     Dosage: UNK
     Route: 060
     Dates: start: 2015, end: 2015
  4. SUBOXONE [Suspect]
     Active Substance: BUPRENORPHINE HYDROCHLORIDE\NALOXONE HYDROCHLORIDE
     Indication: SUBSTANCE USE
     Dosage: UNKNOWN DOSE, ONCE
     Route: 042
     Dates: start: 2015, end: 2015
  5. SUBOXONE [Suspect]
     Active Substance: BUPRENORPHINE HYDROCHLORIDE\NALOXONE HYDROCHLORIDE
     Indication: DRUG DEPENDENCE
     Dosage: UNK
     Route: 060
     Dates: start: 2015, end: 2015
  6. HEROIN [Suspect]
     Active Substance: DIACETYLMORPHINE
     Indication: PRODUCT USED FOR UNKNOWN INDICATION
     Dosage: UNK
     Route: 051

REACTIONS (9)
  - Substance abuse [Not Recovered/Not Resolved]
  - Intentional product use issue [Recovered/Resolved]
  - Therapy cessation [Recovered/Resolved]
  - Intentional underdose [Unknown]
  - Product preparation error [Not Recovered/Not Resolved]
  - Malaise [Recovered/Resolved]
  - Respiratory arrest [Recovered/Resolved]
  - Intentional product use issue [Recovered/Resolved]
  - Drug abuse [Unknown]

NARRATIVE: CASE EVENT DATE: 2015
